FAERS Safety Report 5268893-6 (Version None)
Quarter: 2007Q1

REPORT INFORMATION
  Report Type: 
  Country: None (occurrence: None)
  Receive Date: 20061212
  Receipt Date: 20041103
  Transmission Date: 20070707
  Serious: No
  Sender: FDA-Public Use
  Company Number: 2004UW18440

PATIENT
  Age: 68 Year
  Sex: Male
  Weight: 68.0396 kg

DRUGS (4)
  1. CASODEX [Suspect]
     Indication: PROSTATE CANCER
     Dosage: 50 MG DAILY PO
     Route: 048
     Dates: start: 20010101, end: 20040101
  2. INDERAL [Concomitant]
  3. LIPITOR [Concomitant]
  4. M.V.I. [Concomitant]

REACTIONS (1)
  - GYNAECOMASTIA [None]
